FAERS Safety Report 7033369-2 (Version None)
Quarter: 2010Q4

REPORT INFORMATION
  Report Type: 
  Country: None (occurrence: None)
  Receive Date: 20101007
  Receipt Date: 20100930
  Transmission Date: 20110411
  Serious: Yes (Hospitalization)
  Sender: FDA-Public Use
  Company Number: US-US-EMD SERONO, INC.-7019883

PATIENT
  Sex: Female

DRUGS (4)
  1. REBIF [Suspect]
     Indication: PRODUCT USED FOR UNKNOWN INDICATION
     Route: 058
     Dates: start: 20100716
  2. BACLOFEN [Concomitant]
  3. SIMVASTATIN [Concomitant]
  4. TRAMADOL HCL [Concomitant]

REACTIONS (9)
  - CHILLS [None]
  - DIZZINESS [None]
  - DRUG INEFFECTIVE [None]
  - ECONOMIC PROBLEM [None]
  - FALL [None]
  - MUSCLE SPASMS [None]
  - PYREXIA [None]
  - UPPER LIMB FRACTURE [None]
  - WEIGHT DECREASED [None]
